FAERS Safety Report 9372910 (Version 2)
Quarter: 2013Q3

REPORT INFORMATION
  Report Type: Spontaneous
  Country: JP (occurrence: None)
  Receive Date: 20130612
  Receipt Date: 20130729
  Transmission Date: 20140515
  Serious: Yes (Other)
  Sender: FDA-Public Use
  Company Number: 2013036002

PATIENT
  Age: 69 Year
  Sex: Female

DRUGS (2)
  1. SANDOGLOBULIN [Suspect]
     Indication: MILLER FISHER SYNDROME
     Dosage: INTRAVENOUS (NOT OTHERWISE SPECIFIED)
     Route: 042
  2. SANDOGLOBULIN [Suspect]
     Indication: GUILLAIN-BARRE SYNDROME
     Dosage: INTRAVENOUS (NOT OTHERWISE SPECIFIED)
     Route: 042

REACTIONS (4)
  - Drug ineffective [None]
  - Mydriasis [None]
  - Ophthalmoplegia [None]
  - Muscular weakness [None]
